FAERS Safety Report 12490012 (Version 3)
Quarter: 2017Q2

REPORT INFORMATION
  Report Type: Spontaneous
  Country: US (occurrence: US)
  Receive Date: 20160622
  Receipt Date: 20170524
  Transmission Date: 20170830
  Serious: Yes (Other)
  Sender: FDA-Public Use
  Company Number: US-TEVA-669544USA

PATIENT
  Age: 53 Year
  Sex: Female

DRUGS (16)
  1. DIPHENHYDRAMINE. [Concomitant]
     Active Substance: DIPHENHYDRAMINE
  2. SPIRIVA [Concomitant]
     Active Substance: TIOTROPIUM BROMIDE MONOHYDRATE
  3. GABAPENTIN. [Concomitant]
     Active Substance: GABAPENTIN
  4. COPAXONE [Suspect]
     Active Substance: GLATIRAMER ACETATE
     Indication: MULTIPLE SCLEROSIS
     Route: 058
  5. WELLBUTRIN [Concomitant]
     Active Substance: BUPROPION HYDROCHLORIDE
  6. NAPROSYN [Concomitant]
     Active Substance: NAPROXEN
  7. MULTIVITAMIN [Concomitant]
     Active Substance: VITAMINS
  8. BENADRYL [Concomitant]
     Active Substance: DIPHENHYDRAMINE HYDROCHLORIDE
  9. ACYCLOVIR. [Concomitant]
     Active Substance: ACYCLOVIR
  10. NAPROXEN. [Concomitant]
     Active Substance: NAPROXEN
  11. ZOMIG [Concomitant]
     Active Substance: ZOLMITRIPTAN
  12. PULMICORT TURBUHALER [Concomitant]
     Active Substance: BUDESONIDE
  13. ZOLMITRIPTAN. [Concomitant]
     Active Substance: ZOLMITRIPTAN
  14. FISH OIL [Concomitant]
     Active Substance: FISH OIL
  15. HYOSCYAMINE. [Concomitant]
     Active Substance: HYOSCYAMINE
  16. ESCITALOPRAM [Concomitant]
     Active Substance: ESCITALOPRAM OXALATE

REACTIONS (3)
  - Multiple sclerosis relapse [Not Recovered/Not Resolved]
  - Injection site reaction [Not Recovered/Not Resolved]
  - Fall [Not Recovered/Not Resolved]

NARRATIVE: CASE EVENT DATE: 20160604
